FAERS Safety Report 4354493-9 (Version None)
Quarter: 2004Q2

REPORT INFORMATION
  Report Type: 
  Country: None (occurrence: None)
  Receive Date: 20040503
  Receipt Date: 20040420
  Transmission Date: 20050107
  Serious: Yes (Death)
  Sender: FDA-Public Use
  Company Number: US-JNJFOC-20031102337

PATIENT
  Age: 57 Year
  Sex: Male

DRUGS (11)
  1. DURAGESIC [Suspect]
     Indication: PAIN
     Dosage: 200 UG/HR, 1 IN 48 HOUR, TRANSDERMAL
     Route: 062
     Dates: start: 20000101
  2. AVINZA [Suspect]
     Indication: PAIN
  3. PERCOCET [Concomitant]
  4. VALIUM [Concomitant]
  5. ALBUTEROL [Concomitant]
  6. HYDROCODONE (HYDROCODONE) [Concomitant]
  7. ULTRAM [Concomitant]
  8. LORTAB [Concomitant]
  9. NEURONTIN [Concomitant]
  10. VISTARIL [Concomitant]
  11. IBUPROFEN [Concomitant]

REACTIONS (13)
  - ACCIDENTAL OVERDOSE [None]
  - APPLICATION SITE ERYTHEMA [None]
  - APPLICATION SITE PAIN [None]
  - CHOKING [None]
  - COLD SWEAT [None]
  - DIZZINESS [None]
  - DYSPNOEA [None]
  - HYPERHIDROSIS [None]
  - INCREASED UPPER AIRWAY SECRETION [None]
  - INSOMNIA [None]
  - MARKEDLY REDUCED DIETARY INTAKE [None]
  - MEDICATION ERROR [None]
  - SKIN LESION [None]
